FAERS Safety Report 8908361 (Version 1)
Quarter: 2012Q4

REPORT INFORMATION
  Report Type: 
  Country: US (occurrence: US)
  Receive Date: 20121114
  Receipt Date: 20121114
  Transmission Date: 20130627
  Serious: No
  Sender: FDA-Public Use
  Company Number: US-PFIZER INC-2012281559

PATIENT
  Age: 70 Year
  Sex: Female
  Weight: 65.76 kg

DRUGS (6)
  1. NEURONTIN [Suspect]
     Indication: LEG PAIN
     Dosage: 300 mg, daily
     Dates: start: 201210
  2. NEURONTIN [Suspect]
     Indication: BACK PAIN
  3. NEURONTIN [Suspect]
     Indication: NUMBNESS IN LEG
  4. METFORMIN [Concomitant]
     Indication: DIABETES
     Dosage: 500 mg, daily
  5. LISINOPRIL [Concomitant]
     Indication: BLOOD PRESSURE HIGH
     Dosage: 20 mg, daily
  6. LOVASTATIN [Concomitant]
     Indication: DIABETES
     Dosage: 20 mg, daily

REACTIONS (4)
  - Impaired work ability [Unknown]
  - Dizziness [Not Recovered/Not Resolved]
  - Malaise [Unknown]
  - Incorrect dose administered [Unknown]
